FAERS Safety Report 4353919-4 (Version None)
Quarter: 2004Q2

REPORT INFORMATION
  Report Type: 
  Country: None (occurrence: None)
  Receive Date: 20040506
  Receipt Date: 20031105
  Transmission Date: 20050107
  Serious: No
  Sender: FDA-Public Use
  Company Number: 20030906351

PATIENT
  Age: 17 Year
  Sex: Female
  Weight: 54.5 kg

DRUGS (2)
  1. AMOXILLIN [Suspect]
     Route: 048
     Dates: start: 20030922
  2. CONCERTA [Suspect]
     Indication: ATTENTION DEFICIT/HYPERACTIVITY DISORDER
     Dosage: 18MG PER DAY
     Route: 048
     Dates: start: 20030922

REACTIONS (1)
  - URTICARIA [None]
